FAERS Safety Report 16921883 (Version 1)
Quarter: 2019Q4

REPORT INFORMATION
  Report Type: Spontaneous
  Country: US (occurrence: US)
  Receive Date: 20191015
  Receipt Date: 20191015
  Transmission Date: 20200122
  Serious: Yes (Other)
  Sender: FDA-Public Use
  Company Number: NVSC2019US002054

PATIENT
  Sex: Female

DRUGS (1)
  1. GILENYA [Suspect]
     Active Substance: FINGOLIMOD HYDROCHLORIDE
     Indication: PRODUCT USED FOR UNKNOWN INDICATION
     Dosage: UNK
     Route: 065

REACTIONS (6)
  - Feeding disorder [Recovering/Resolving]
  - Dysarthria [Recovering/Resolving]
  - Normal newborn [Unknown]
  - Maternal exposure during pregnancy [Unknown]
  - Gait inability [Recovering/Resolving]
  - Multiple sclerosis relapse [Recovering/Resolving]
